FAERS Safety Report 25139794 (Version 1)
Quarter: 2025Q1

REPORT INFORMATION
  Report Type: Spontaneous
  Country: FR (occurrence: FR)
  Receive Date: 20250331
  Receipt Date: 20250331
  Transmission Date: 20250408
  Serious: Yes (Life-Threatening)
  Sender: TEVA
  Company Number: None

PATIENT
  Age: 41 Year
  Sex: Male
  Weight: 106 kg

DRUGS (5)
  1. PREGABALIN [Suspect]
     Active Substance: PREGABALIN
     Indication: Anxiety disorder
     Route: 048
     Dates: start: 20190327, end: 20250225
  2. OXAZEPAM [Suspect]
     Active Substance: OXAZEPAM
     Indication: Anxiety disorder
     Route: 048
     Dates: start: 20250225, end: 20250225
  3. OXAZEPAM [Suspect]
     Active Substance: OXAZEPAM
     Indication: Anxiety disorder
     Route: 048
     Dates: start: 20190327, end: 20250224
  4. METHADONE [Suspect]
     Active Substance: METHADONE HYDROCHLORIDE
     Indication: Drug withdrawal maintenance therapy
     Route: 048
     Dates: start: 20190327, end: 20250225
  5. BACLOFEN [Suspect]
     Active Substance: BACLOFEN
     Indication: Alcoholism
     Route: 048
     Dates: start: 20231114, end: 20250225

REACTIONS (2)
  - Coma [Recovered/Resolved]
  - Bradypnoea [Recovered/Resolved]

NARRATIVE: CASE EVENT DATE: 20250225
